FAERS Safety Report 9268187 (Version 6)
Quarter: 2015Q2

REPORT INFORMATION
  Report Type: Spontaneous
  Country: US (occurrence: US)
  Receive Date: 20130502
  Receipt Date: 20150420
  Transmission Date: 20150821
  Serious: No
  Sender: FDA-Public Use
  Company Number: US-009507513-1305USA000879

PATIENT
  Sex: Male
  Weight: 123.36 kg

DRUGS (2)
  1. FINASTERIDE. [Suspect]
     Active Substance: FINASTERIDE
     Indication: ALOPECIA
     Dosage: 1 MG, QD
     Route: 048
  2. PROPECIA [Suspect]
     Active Substance: FINASTERIDE
     Indication: ALOPECIA
     Dosage: 1 MG, QD
     Route: 048
     Dates: start: 19980226

REACTIONS (30)
  - Metatarsalgia [Unknown]
  - Rotator cuff syndrome [Unknown]
  - Neck pain [Unknown]
  - Sarcoidosis [Unknown]
  - Amnesia [Unknown]
  - Injury [Unknown]
  - Hypertension [Unknown]
  - Hyperlipidaemia [Unknown]
  - Hypoaesthesia [Unknown]
  - Erectile dysfunction [Not Recovered/Not Resolved]
  - Reproductive tract disorder [Unknown]
  - Restless legs syndrome [Unknown]
  - Craniocerebral injury [Unknown]
  - Weight increased [Unknown]
  - Type 2 diabetes mellitus [Unknown]
  - Hypertriglyceridaemia [Unknown]
  - Tendonitis [Unknown]
  - Pulmonary mass [Unknown]
  - Spermatozoa progressive motility decreased [Unknown]
  - Pneumonia [Recovering/Resolving]
  - Arthralgia [Unknown]
  - Bronchitis [Unknown]
  - Oligospermia [Unknown]
  - Gastrooesophageal reflux disease [Unknown]
  - Diabetes mellitus inadequate control [Unknown]
  - Memory impairment [Unknown]
  - Lipase increased [Unknown]
  - Multiple injuries [Unknown]
  - Impaired gastric emptying [Unknown]
  - Sexual dysfunction [Not Recovered/Not Resolved]

NARRATIVE: CASE EVENT DATE: 20031008
